FAERS Safety Report 21012615 (Version 1)
Quarter: 2022Q2

REPORT INFORMATION
  Report Type: Other
  Country: US (occurrence: US)
  Receive Date: 20220627
  Receipt Date: 20220627
  Transmission Date: 20220721
  Serious: Yes (Hospitalization)
  Sender: FDA-Public Use
  Company Number: US-MAYNE PHARMA-2022MYN000921

PATIENT

DRUGS (1)
  1. CLOZAPINE [Suspect]
     Active Substance: CLOZAPINE
     Indication: Product used for unknown indication
     Dosage: 50 MG, QD (IN THE MORNING); 200 MG, QD (AT NIGHT)
     Route: 048

REACTIONS (2)
  - Rebound psychosis [Unknown]
  - Treatment noncompliance [Unknown]
